FAERS Safety Report 25673523 (Version 2)
Quarter: 2025Q3

REPORT INFORMATION
  Report Type: Spontaneous
  Country: US (occurrence: US)
  Receive Date: 20250813
  Receipt Date: 20250923
  Transmission Date: 20251020
  Serious: Yes (Hospitalization)
  Sender: DOMPE FARMACEUTICI
  Company Number: US-FARMAPROD-202507-2334

PATIENT
  Sex: Male

DRUGS (30)
  1. OXERVATE [Suspect]
     Active Substance: CENEGERMIN-BKBJ
     Indication: Hypoaesthesia eye
     Dates: start: 20250623
  2. OXERVATE [Suspect]
     Active Substance: CENEGERMIN-BKBJ
  3. FLAXSEED [Concomitant]
     Active Substance: FLAX SEED
  4. ZOLPIDEM TARTRATE [Concomitant]
     Active Substance: ZOLPIDEM TARTRATE
  5. XDEMVY [Concomitant]
     Active Substance: LOTILANER
  6. CHLORTHALIDONE [Concomitant]
     Active Substance: CHLORTHALIDONE
  7. NALOXONE HCL [Concomitant]
     Active Substance: NALOXONE HYDROCHLORIDE
  8. DILAUDID [Concomitant]
     Active Substance: HYDROMORPHONE HYDROCHLORIDE
  9. ANASTROZOLE [Concomitant]
     Active Substance: ANASTROZOLE
  10. NITROFURANTOIN [Concomitant]
     Active Substance: NITROFURANTOIN
  11. LISINOPRIL [Concomitant]
     Active Substance: LISINOPRIL
  12. RESTASIS [Concomitant]
     Active Substance: CYCLOSPORINE
  13. VITAMIN D3 [Concomitant]
     Active Substance: CHOLECALCIFEROL
  14. CARVEDILOL [Concomitant]
     Active Substance: CARVEDILOL
  15. MIEBO [Concomitant]
     Active Substance: PERFLUOROHEXYLOCTANE
  16. OLOPATADINE HYDROCHLORIDE [Concomitant]
     Active Substance: OLOPATADINE HYDROCHLORIDE
  17. PREGABALIN [Concomitant]
     Active Substance: PREGABALIN
  18. ROSUVASTATIN CALCIUM [Concomitant]
     Active Substance: ROSUVASTATIN CALCIUM
  19. AMITRIPTYLINE HYDROCHLORIDE [Concomitant]
     Active Substance: AMITRIPTYLINE HYDROCHLORIDE
  20. BISACODYL [Concomitant]
     Active Substance: BISACODYL
  21. LORAZEPAM [Concomitant]
     Active Substance: LORAZEPAM
  22. MAGNESIUM OXIDE [Concomitant]
     Active Substance: MAGNESIUM OXIDE
  23. TADALAFIL [Concomitant]
     Active Substance: TADALAFIL
  24. SUMATRIPTAN SUCCINATE [Concomitant]
     Active Substance: SUMATRIPTAN SUCCINATE
  25. PANTOPRAZOLE SODIUM [Concomitant]
     Active Substance: PANTOPRAZOLE SODIUM
  26. TRAZODONE HCL [Concomitant]
     Active Substance: TRAZODONE HYDROCHLORIDE
  27. IPRATROPIUM BROMIDE [Concomitant]
     Active Substance: IPRATROPIUM BROMIDE
  28. DICYCLOMINE HYDROCHLORIDE [Concomitant]
     Active Substance: DICYCLOMINE HYDROCHLORIDE
  29. FENTANYL [Concomitant]
     Active Substance: FENTANYL
  30. TESTOSTERONE CYPIONATE [Concomitant]
     Active Substance: TESTOSTERONE CYPIONATE

REACTIONS (2)
  - Spinal operation [Recovering/Resolving]
  - Eye pain [Unknown]
